FAERS Safety Report 6003624-3 (Version None)
Quarter: 2008Q4

REPORT INFORMATION
  Report Type: 
  Country: None (occurrence: None)
  Receive Date: 20081212
  Receipt Date: 20081204
  Transmission Date: 20090506
  Serious: Yes (Life-Threatening, Hospitalization)
  Sender: FDA-Public Use
  Company Number: 107258

PATIENT
  Age: 48 Year
  Sex: Male

DRUGS (1)
  1. IBUPROFEN [Suspect]

REACTIONS (10)
  - DRUG TOXICITY [None]
  - ENCEPHALOPATHY [None]
  - HEPATIC FAILURE [None]
  - HYPOGLYCAEMIA [None]
  - PANCREATIC ABSCESS [None]
  - PANCREATIC PSEUDOCYST [None]
  - PANCREATITIS NECROTISING [None]
  - POST PROCEDURAL BILE LEAK [None]
  - TRANSPLANT REJECTION [None]
  - VASCULITIS NECROTISING [None]
